FAERS Safety Report 21659848 (Version 1)
Quarter: 2022Q4

REPORT INFORMATION
  Report Type: Spontaneous
  Country: ES (occurrence: ES)
  Receive Date: 20221130
  Receipt Date: 20221130
  Transmission Date: 20230113
  Serious: Yes (Life-Threatening, Hospitalization, Other)
  Sender: FDA-Public Use
  Company Number: ES-AMGEN-ESPSP2022202840

PATIENT
  Age: 18 Year
  Sex: Female

DRUGS (20)
  1. FILGRASTIM [Suspect]
     Active Substance: FILGRASTIM
     Indication: Neutropenia
     Dosage: 10 MICROGRAM/KILOGRAM, QD FOR 4 DAYS
     Route: 065
  2. FLUDARABINE [Concomitant]
     Active Substance: FLUDARABINE PHOSPHATE
  3. IDARUBICIN [Concomitant]
     Active Substance: IDARUBICIN
  4. CYTARABINE [Concomitant]
     Active Substance: CYTARABINE
  5. CYCLOPHOSPHAMIDE [Concomitant]
     Active Substance: CYCLOPHOSPHAMIDE
  6. ELTROMBOPAG [Concomitant]
     Active Substance: ELTROMBOPAG
  7. TISAGENLECLEUCEL [Concomitant]
     Active Substance: TISAGENLECLEUCEL
  8. INOTUZUMAB OZOGAMICIN [Concomitant]
     Active Substance: INOTUZUMAB OZOGAMICIN
  9. DEXAMETHASONE [Concomitant]
     Active Substance: DEXAMETHASONE
  10. POSACONAZOLE [Concomitant]
     Active Substance: POSACONAZOLE
  11. LEVOFLOXACIN [Concomitant]
     Active Substance: LEVOFLOXACIN
  12. ACYCLOVIR [Concomitant]
     Active Substance: ACYCLOVIR
  13. PENTAMIDINE [Concomitant]
     Active Substance: PENTAMIDINE
     Dosage: UNK
     Route: 040
  14. TOCILIZUMAB [Concomitant]
     Active Substance: TOCILIZUMAB
  15. METHYLPREDNISOLONE [Concomitant]
     Active Substance: METHYLPREDNISOLONE
  16. SILTUXIMAB [Concomitant]
     Active Substance: SILTUXIMAB
  17. MICAFUNGIN [Concomitant]
     Active Substance: MICAFUNGIN
  18. AMPHOTERICIN B [Concomitant]
     Active Substance: AMPHOTERICIN B
  19. VORICONAZOLE [Concomitant]
     Active Substance: VORICONAZOLE
  20. PLERIXAFOR [Concomitant]
     Active Substance: PLERIXAFOR

REACTIONS (7)
  - Pneumonia fungal [Recovered/Resolved]
  - Thrombocytopenia [Recovering/Resolving]
  - Aplasia [Recovered/Resolved]
  - Febrile neutropenia [Recovering/Resolving]
  - Acute lymphocytic leukaemia [Unknown]
  - Drug ineffective [Unknown]
  - Bone pain [Unknown]
